FAERS Safety Report 5652921-X (Version None)
Quarter: 2008Q1

REPORT INFORMATION
  Report Type: 
  Country: None (occurrence: None)
  Receive Date: 20080306
  Receipt Date: 20080222
  Transmission Date: 20080703
  Serious: Yes (Life-Threatening, Hospitalization, Other)
  Sender: FDA-Public Use
  Company Number: GB-AMGEN-UK196179

PATIENT
  Sex: Female
  Weight: 83.7 kg

DRUGS (7)
  1. NEULASTA [Suspect]
     Indication: CHEMOTHERAPY
     Route: 058
     Dates: start: 20061004, end: 20061004
  2. FLUOROURACIL [Concomitant]
     Route: 042
     Dates: start: 20061003, end: 20061003
  3. EPIRUBICIN [Concomitant]
     Route: 042
     Dates: start: 20061003, end: 20061003
  4. CYCLOPHOSPHAMIDE [Concomitant]
     Route: 042
     Dates: start: 20061003, end: 20061003
  5. DEXAMETHASONE TAB [Concomitant]
     Route: 048
     Dates: start: 20061003, end: 20061003
  6. ONDANSETRON [Concomitant]
     Route: 048
  7. DESLORATADINE [Concomitant]
     Route: 065

REACTIONS (16)
  - ANAPHYLACTOID REACTION [None]
  - COUGH [None]
  - DYSPNOEA [None]
  - HYPERSENSITIVITY [None]
  - HYPOTENSION [None]
  - HYPOXIA [None]
  - LOCAL SWELLING [None]
  - NASAL DISCOMFORT [None]
  - NAUSEA [None]
  - PALPITATIONS [None]
  - PARAESTHESIA [None]
  - PRURITUS [None]
  - SWELLING [None]
  - SWELLING FACE [None]
  - URTICARIA [None]
  - VOMITING [None]
